FAERS Safety Report 8502206-9 (Version None)
Quarter: 2012Q3

REPORT INFORMATION
  Report Type: 
  Country: None (occurrence: None)
  Receive Date: 20120711
  Receipt Date: 20120629
  Transmission Date: 20120928
  Serious: Yes (Other)
  Sender: FDA-Public Use
  Company Number: JP-ABBOTT-12P-087-0953570-00

PATIENT
  Sex: Female

DRUGS (1)
  1. LEUPLIN FOR INJECTION KIT 1.88 [Suspect]
     Indication: PRODUCT USED FOR UNKNOWN INDICATION
     Route: 058

REACTIONS (1)
  - SUBARACHNOID HAEMORRHAGE [None]
